FAERS Safety Report 22930470 (Version 4)
Quarter: 2024Q2

REPORT INFORMATION
  Report Type: Spontaneous
  Country: US (occurrence: US)
  Receive Date: 20230911
  Receipt Date: 20240506
  Transmission Date: 20240716
  Serious: Yes (Hospitalization)
  Sender: FDA-Public Use
  Company Number: US-PFIZER INC-202300296343

PATIENT
  Age: 38 Year
  Sex: Female
  Weight: 83.46 kg

DRUGS (2)
  1. OXBRYTA [Interacting]
     Active Substance: VOXELOTOR
     Indication: Sickle cell disease
     Dosage: 1500MG TABLET ONCE A DAY
     Route: 048
     Dates: start: 20230901
  2. KLOR-CON [Interacting]
     Active Substance: POTASSIUM CHLORIDE
     Dosage: UNK

REACTIONS (5)
  - Sickle cell anaemia with crisis [Recovering/Resolving]
  - Abnormal faeces [Unknown]
  - Drug interaction [Unknown]
  - Abdominal pain upper [Not Recovered/Not Resolved]
  - Diarrhoea [Recovered/Resolved]

NARRATIVE: CASE EVENT DATE: 20230101
